FAERS Safety Report 15782470 (Version 3)
Quarter: 2019Q2

REPORT INFORMATION
  Report Type: Report from Study
  Country: US (occurrence: US)
  Receive Date: 20190102
  Receipt Date: 20190603
  Transmission Date: 20190711
  Serious: Yes (Other)
  Sender: FDA-Public Use
  Company Number: US-PFIZER INC-2018468159

PATIENT
  Age: 62 Year
  Sex: Female

DRUGS (1)
  1. XELJANZ [Suspect]
     Active Substance: TOFACITINIB CITRATE
     Indication: RHEUMATOID ARTHRITIS
     Dosage: 5 MG, 2X/DAY (BID)
     Route: 048
     Dates: start: 201807

REACTIONS (15)
  - Neck pain [Recovered/Resolved]
  - Cough [Recovered/Resolved]
  - Candida infection [Recovered/Resolved]
  - Mouth ulceration [Unknown]
  - Product dose omission [Unknown]
  - Weight increased [Unknown]
  - Condition aggravated [Recovered/Resolved]
  - Peripheral swelling [Recovered/Resolved]
  - Haematochezia [Recovered/Resolved]
  - Nasopharyngitis [Recovered/Resolved]
  - Musculoskeletal stiffness [Recovered/Resolved]
  - Lip disorder [Unknown]
  - Arthralgia [Unknown]
  - Pain [Recovered/Resolved]
  - Joint noise [Unknown]

NARRATIVE: CASE EVENT DATE: 2018
